FAERS Safety Report 7093936-7 (Version None)
Quarter: 2010Q4

REPORT INFORMATION
  Report Type: 
  Country: None (occurrence: None)
  Receive Date: 20101102
  Receipt Date: 20101025
  Transmission Date: 20110411
  Serious: Yes (Other)
  Sender: FDA-Public Use
  Company Number: US-1182923

PATIENT
  Age: 83 Year
  Sex: Female
  Weight: 45.3597 kg

DRUGS (10)
  1. SYSTANE EYE DROPS [Suspect]
     Indication: DRY EYE
     Dosage: 1 GTT OU BID OPHTHALMIC
     Route: 047
     Dates: start: 20100501, end: 20100701
  2. SYSTANE EYE DROPS [Suspect]
     Indication: DRY EYE
     Dosage: 1 GTT OU BID OPHTHALMIC
     Route: 047
     Dates: start: 20100101
  3. GENTEAL EYE DROPS (NOT SPECIFIED) [Suspect]
     Indication: DRY EYE
     Dosage: OPHTHALMIC
     Route: 047
     Dates: start: 20100701
  4. ZOCOR [Concomitant]
  5. LEVOXYL [Concomitant]
  6. FUROSEMIDE [Concomitant]
  7. METOPROLOL [Concomitant]
  8. ASPIRIN [Concomitant]
  9. SPIRONOLACTONE [Concomitant]
  10. DARVOCET [Concomitant]

REACTIONS (1)
  - HALLUCINATION [None]
